FAERS Safety Report 4360682-X (Version None)
Quarter: 2004Q2

REPORT INFORMATION
  Report Type: 
  Country: None (occurrence: None)
  Receive Date: 20040514
  Receipt Date: 20040505
  Transmission Date: 20050107
  Serious: Yes (Death, Life-Threatening, Hospitalization)
  Sender: FDA-Public Use
  Company Number: 2004212344TH

PATIENT
  Age: 40 Year
  Sex: Female

DRUGS (3)
  1. CELEBREX [Suspect]
     Indication: MYALGIA
     Dosage: ORAL
     Route: 048
     Dates: start: 20040421
  2. PONSTEL [Suspect]
     Indication: MYALGIA
     Dosage: 500 MG, TID, ORAL
     Route: 048
     Dates: start: 20040421
  3. CIPROFLOXACIN [Suspect]
     Indication: DIARRHOEA
     Dosage: 500 MG, BID, ORAL
     Route: 048
     Dates: start: 20040421

REACTIONS (1)
  - SHOCK [None]
